FAERS Safety Report 24613340 (Version 1)
Quarter: 2024Q4

REPORT INFORMATION
  Report Type: Spontaneous
  Country: US (occurrence: None)
  Receive Date: 20241112
  Receipt Date: 20241112
  Transmission Date: 20250115
  Serious: Yes (Hospitalization)
  Sender: Public
  Company Number: None

PATIENT
  Age: 35 Year
  Sex: Male
  Weight: 87.75 kg

DRUGS (4)
  1. NUCALA [Suspect]
     Active Substance: MEPOLIZUMAB
     Indication: Asthma
     Dates: start: 20240904, end: 20241102
  2. PRAVASTATIN [Concomitant]
     Active Substance: PRAVASTATIN
  3. Amiodapine [Concomitant]
  4. MONTELUKAST [Concomitant]
     Active Substance: MONTELUKAST

REACTIONS (11)
  - Muscle spasms [None]
  - Myalgia [None]
  - Acute kidney injury [None]
  - Chills [None]
  - Fatigue [None]
  - Nausea [None]
  - Decreased appetite [None]
  - Abdominal pain [None]
  - Vision blurred [None]
  - Muscular weakness [None]
  - Brain fog [None]

NARRATIVE: CASE EVENT DATE: 20241015
